FAERS Safety Report 18559730 (Version 1)
Quarter: 2020Q4

REPORT INFORMATION
  Report Type: Spontaneous
  Country: US (occurrence: US)
  Receive Date: 20201130
  Receipt Date: 20201130
  Transmission Date: 20210114
  Serious: No
  Sender: FDA-Public Use
  Company Number: US-JNJFOC-20201132919

PATIENT
  Age: 45 Year
  Sex: Male
  Weight: 102.15 kg

DRUGS (1)
  1. MENS ROGAINE EXTRA STRENGTH [Suspect]
     Active Substance: MINOXIDIL
     Indication: ALOPECIA
     Dosage: DOSE: ONE DROP ON THE SCALP?PRODUCT LAST ADMINISTERED: 3 WEEKS AGO
     Route: 061
     Dates: start: 202010, end: 202010

REACTIONS (3)
  - Application site pruritus [Recovered/Resolved]
  - Swelling face [Recovered/Resolved]
  - Incorrect dose administered [Unknown]

NARRATIVE: CASE EVENT DATE: 202010
